FAERS Safety Report 14239697 (Version 1)
Quarter: 2017Q4

REPORT INFORMATION
  Report Type: Spontaneous
  Country: JP (occurrence: None)
  Receive Date: 20171127
  Receipt Date: 20171127
  Transmission Date: 20180321
  Serious: Yes (Disabling)
  Sender: FDA-Public Use
  Company Number: None

PATIENT
  Age: 39 Year
  Sex: Female
  Weight: 62 kg

DRUGS (1)
  1. MIRENA [Suspect]
     Active Substance: LEVONORGESTREL

REACTIONS (7)
  - Dry eye [None]
  - Cough [None]
  - Oropharyngeal pain [None]
  - Dry throat [None]
  - Dry mouth [None]
  - Sjogren^s syndrome [None]
  - Asthenopia [None]

NARRATIVE: CASE EVENT DATE: 20160801
